FAERS Safety Report 17974983 (Version 1)
Quarter: 2020Q3

REPORT INFORMATION
  Report Type: Spontaneous
  Country: US (occurrence: US)
  Receive Date: 20200702
  Receipt Date: 20200702
  Transmission Date: 20201103
  Serious: No
  Sender: FDA-Public Use
  Company Number: US-SA-2020SA169452

PATIENT

DRUGS (4)
  1. XELJANZ [Suspect]
     Active Substance: TOFACITINIB CITRATE
     Indication: RHEUMATOID ARTHRITIS
     Dosage: 5 MG, BID
     Route: 048
     Dates: start: 2019
  2. HYDROXYCHLOROQUINE [Suspect]
     Active Substance: HYDROXYCHLOROQUINE
     Dosage: UNK
     Dates: start: 2019
  3. LEFLUNOMIDE. [Suspect]
     Active Substance: LEFLUNOMIDE
     Dosage: UNK
     Dates: start: 2019
  4. PREDNISONE. [Suspect]
     Active Substance: PREDNISONE
     Dosage: 3.5 MG, QD, 1 MG NIGHT AND 2.5 MG IN MORNING
     Dates: start: 2019

REACTIONS (1)
  - Onychomadesis [Unknown]

NARRATIVE: CASE EVENT DATE: 2019
